FAERS Safety Report 6058938-8 (Version None)
Quarter: 2009Q1

REPORT INFORMATION
  Report Type: 
  Country: None (occurrence: None)
  Receive Date: 20090128
  Receipt Date: 20090128
  Transmission Date: 20090719
  Serious: No
  Sender: FDA-Public Use
  Company Number: None

PATIENT
  Age: 61 Year
  Sex: Male

DRUGS (1)
  1. COLGATE FLUORIDE TOOTHPASTE BAKING SODA + PEROXIDE [Suspect]
     Indication: DENTAL CARE
     Dosage: 0.3^ DENTAL
     Route: 004
     Dates: start: 20081122, end: 20081122

REACTIONS (3)
  - HYPOPHAGIA [None]
  - ORAL PAIN [None]
  - THERMAL BURN [None]
